FAERS Safety Report 11424833 (Version 2)
Quarter: 2015Q3

REPORT INFORMATION
  Report Type: Spontaneous
  Country: US (occurrence: US)
  Receive Date: 20150821
  Receipt Date: 20150903
  Transmission Date: 20151125
  Serious: No
  Sender: FDA-Public Use
  Company Number: US-ELI_LILLY_AND_COMPANY-US201212004109

PATIENT
  Sex: Female

DRUGS (4)
  1. HUMULIN N [Suspect]
     Active Substance: INSULIN HUMAN
     Route: 064
  2. HUMALOG [Suspect]
     Active Substance: INSULIN LISPRO
     Route: 064
  3. LANTUS [Concomitant]
     Active Substance: INSULIN GLARGINE
     Dosage: UNK
     Route: 064
     Dates: start: 1999
  4. HUMULIN R [Suspect]
     Active Substance: INSULIN HUMAN
     Route: 064

REACTIONS (5)
  - Foetal exposure during pregnancy [Recovered/Resolved]
  - Alpha 1 foetoprotein decreased [Recovered/Resolved]
  - Blood glucose increased [Not Recovered/Not Resolved]
  - Hypoglycaemia [Not Recovered/Not Resolved]
  - Weight decrease neonatal [Unknown]
